FAERS Safety Report 5685516-2 (Version None)
Quarter: 2008Q1

REPORT INFORMATION
  Report Type: 
  Country: None (occurrence: None)
  Receive Date: 20080328
  Receipt Date: 20080317
  Transmission Date: 20080703
  Serious: Yes (Other)
  Sender: FDA-Public Use
  Company Number: JP-PFIZER INC-2008026539

PATIENT
  Sex: Male
  Weight: 50 kg

DRUGS (6)
  1. CAMPTO [Suspect]
     Indication: NON-SMALL CELL LUNG CANCER
     Dosage: DAILY DOSE:73MG
     Route: 042
     Dates: start: 20041214, end: 20050111
  2. CAMPTO [Suspect]
     Dosage: DAILY DOSE:58.4MG
     Route: 042
     Dates: start: 20050208, end: 20050517
  3. PACLITAXEL [Suspect]
     Indication: NON-SMALL CELL LUNG CANCER
     Dosage: DAILY DOSE:262.8MG
     Route: 042
     Dates: start: 20041214, end: 20050111
  4. PACLITAXEL [Suspect]
     Dosage: DAILY DOSE:219MG
     Route: 042
     Dates: start: 20050208, end: 20050510
  5. VALSARTAN [Concomitant]
     Indication: HYPERTENSION
     Route: 048
  6. CONIEL [Concomitant]
     Indication: HYPERTENSION
     Route: 048

REACTIONS (7)
  - BLOOD CREATININE INCREASED [None]
  - BLOOD POTASSIUM DECREASED [None]
  - BLOOD UREA INCREASED [None]
  - HAEMOGLOBIN DECREASED [None]
  - NEUTROPHIL COUNT DECREASED [None]
  - RENAL FAILURE [None]
  - WHITE BLOOD CELL COUNT DECREASED [None]
